FAERS Safety Report 7546590-1 (Version None)
Quarter: 2011Q2

REPORT INFORMATION
  Report Type: 
  Country: None (occurrence: None)
  Receive Date: 20110614
  Receipt Date: 20110606
  Transmission Date: 20111010
  Serious: Yes (Hospitalization)
  Sender: FDA-Public Use
  Company Number: US-ELI_LILLY_AND_COMPANY-US201104007275

PATIENT
  Sex: Female
  Weight: 55.782 kg

DRUGS (7)
  1. VITAMIN B-12 [Concomitant]
     Dosage: 1000 UG, UNK
     Route: 030
  2. INSULIN [Concomitant]
     Dosage: UNK
  3. MEVACOR [Concomitant]
     Dosage: UNK
  4. TOPROL-XL [Concomitant]
     Dosage: 50 MG, UNK
  5. OXYCODONE HCL [Concomitant]
     Dosage: UNK
  6. ASPIRIN [Concomitant]
     Dosage: 81 MG, UNK
  7. BYETTA [Suspect]
     Indication: TYPE 2 DIABETES MELLITUS
     Dosage: 5 UG, BID
     Route: 058
     Dates: start: 20061201, end: 20110414

REACTIONS (4)
  - DIARRHOEA [None]
  - DEHYDRATION [None]
  - OFF LABEL USE [None]
  - VOMITING [None]
